FAERS Safety Report 24310435 (Version 1)
Quarter: 2024Q3

REPORT INFORMATION
  Report Type: Spontaneous
  Country: FR (occurrence: FR)
  Receive Date: 20240912
  Receipt Date: 20240912
  Transmission Date: 20241016
  Serious: Yes (Other)
  Sender: ROCHE
  Company Number: None

PATIENT
  Age: 33 Year
  Sex: Female

DRUGS (2)
  1. AVASTIN [Suspect]
     Active Substance: BEVACIZUMAB
     Indication: Glioblastoma
     Dosage: 15MG/KG TOUTES LES 3 SEMAINES
     Route: 042
     Dates: start: 20240618
  2. ETHINYL ESTRADIOL\LEVONORGESTREL [Suspect]
     Active Substance: ETHINYL ESTRADIOL\LEVONORGESTREL
     Indication: Oral contraception
     Dosage: 1 COMPRIME PAR JOUR
     Route: 048

REACTIONS (1)
  - Budd-Chiari syndrome [Not Recovered/Not Resolved]

NARRATIVE: CASE EVENT DATE: 20240714
